FAERS Safety Report 23103747 (Version 1)
Quarter: 2023Q4

REPORT INFORMATION
  Report Type: Spontaneous
  Country: US (occurrence: US)
  Receive Date: 20231025
  Receipt Date: 20231025
  Transmission Date: 20240110
  Serious: No
  Sender: FDA-Public Use
  Company Number: US-PFIZER INC-PV202300174606

PATIENT
  Age: 22 Year
  Sex: Female

DRUGS (2)
  1. CLINDAMYCIN PHOSPHATE [Suspect]
     Active Substance: CLINDAMYCIN PHOSPHATE
     Indication: Hidradenitis
     Dosage: UNK
  2. COSENTYX [Concomitant]
     Active Substance: SECUKINUMAB
     Indication: Hidradenitis
     Dosage: UNK

REACTIONS (1)
  - Drug ineffective [Unknown]
